FAERS Safety Report 8595366-5 (Version None)
Quarter: 2012Q3

REPORT INFORMATION
  Report Type: 
  Country: None (occurrence: None)
  Receive Date: 20120815
  Receipt Date: 20120627
  Transmission Date: 20120928
  Serious: Yes (Death, Life-Threatening)
  Sender: FDA-Public Use
  Company Number: KR-009507513-2012SP036328

PATIENT

DRUGS (7)
  1. BOCEPREVIR [Suspect]
     Dosage: 12 DF, TID
     Route: 048
     Dates: start: 20120503, end: 20120530
  2. BOCEPREVIR [Suspect]
     Dosage: 12 DF, TID
     Route: 048
     Dates: start: 20120503, end: 20120530
  3. RIBAVIRIN [Suspect]
     Indication: HEPATITIS C
     Dosage: 5 DF, BID
     Route: 048
     Dates: start: 20120405, end: 20120530
  4. BOCEPREVIR [Suspect]
     Dosage: 12 DF, TID
     Route: 048
     Dates: start: 20120503, end: 20120530
  5. BOCEPREVIR [Suspect]
     Dosage: 12 DF, TID
     Route: 048
     Dates: start: 20120503, end: 20120530
  6. PEG-INTRON [Suspect]
     Indication: HEPATITIS C
     Dosage: 1 DF, QW
     Route: 058
     Dates: start: 20120405, end: 20120530
  7. RIBAVIRIN [Suspect]
     Dosage: 5 DF, BID
     Route: 048
     Dates: start: 20120405, end: 20120530

REACTIONS (1)
  - MAJOR DEPRESSION [None]
